FAERS Safety Report 5446833-4 (Version None)
Quarter: 2007Q3

REPORT INFORMATION
  Report Type: 
  Country: None (occurrence: None)
  Receive Date: 20070907
  Receipt Date: 20070828
  Transmission Date: 20080115
  Serious: Yes (Other)
  Sender: FDA-Public Use
  Company Number: AR-PFIZER INC-2007072656

PATIENT
  Sex: Female

DRUGS (1)
  1. CHAMPIX [Suspect]

REACTIONS (6)
  - GASTRIC DISORDER [None]
  - PALATAL DISORDER [None]
  - POISONING [None]
  - STOMATITIS [None]
  - SWELLING [None]
  - VOMITING [None]
